FAERS Safety Report 7958522-2 (Version None)
Quarter: 2011Q4

REPORT INFORMATION
  Report Type: 
  Country: None (occurrence: None)
  Receive Date: 20111206
  Receipt Date: 20111129
  Transmission Date: 20120403
  Serious: Yes (Other)
  Sender: FDA-Public Use
  Company Number: US-BIOGENIDEC-2011BI045453

PATIENT
  Age: 47 Year
  Sex: Male

DRUGS (1)
  1. TYSABRI [Suspect]
     Indication: MULTIPLE SCLEROSIS
     Route: 042
     Dates: start: 20101011, end: 20111107

REACTIONS (5)
  - HEPATIC NEOPLASM MALIGNANT [None]
  - MUSCLE TWITCHING [None]
  - BONE CANCER METASTATIC [None]
  - MUSCULAR WEAKNESS [None]
  - MUSCLE SPASMS [None]
